FAERS Safety Report 4968312-0 (Version None)
Quarter: 2006Q2

REPORT INFORMATION
  Report Type: 
  Country: None (occurrence: None)
  Receive Date: 20060405
  Receipt Date: 20060323
  Transmission Date: 20061013
  Serious: Yes (Death)
  Sender: FDA-Public Use
  Company Number: L06-TUR-01274-01

PATIENT
  Age: 14 Year
  Sex: Male

DRUGS (2)
  1. CARBAMZAEPINE (CARBAMAZEPINE) [Suspect]
     Indication: CONVULSION
  2. PHENYTOIN [Concomitant]

REACTIONS (21)
  - ACUTE RESPIRATORY DISTRESS SYNDROME [None]
  - AGRANULOCYTOSIS [None]
  - BACTERIA BLOOD IDENTIFIED [None]
  - DISSEMINATED INTRAVASCULAR COAGULATION [None]
  - GASTROENTERITIS [None]
  - GENERAL PHYSICAL HEALTH DETERIORATION [None]
  - HAEMATOCRIT DECREASED [None]
  - HEART RATE INCREASED [None]
  - HYPERSENSITIVITY [None]
  - KLEBSIELLA INFECTION [None]
  - LYMPHOCYTOSIS [None]
  - MONOCYTOSIS [None]
  - NEUTROPENIC SEPSIS [None]
  - PERITONEAL DIALYSIS [None]
  - PNEUMOTHORAX [None]
  - PYREXIA [None]
  - RASH ERYTHEMATOUS [None]
  - RASH MACULO-PAPULAR [None]
  - RENAL FAILURE [None]
  - RESPIRATORY RATE INCREASED [None]
  - WHITE BLOOD CELL COUNT DECREASED [None]
